FAERS Safety Report 8279744-X (Version None)
Quarter: 2012Q2

REPORT INFORMATION
  Report Type: 
  Country: None (occurrence: None)
  Receive Date: 20120412
  Receipt Date: 20110803
  Transmission Date: 20120825
  Serious: No
  Sender: FDA-Public Use
  Company Number: US-ASTRAZENECA-2011SE46354

PATIENT
  Age: 66 Year
  Sex: Female

DRUGS (6)
  1. CALTRATE D [Concomitant]
  2. ASPIRIN [Concomitant]
     Dosage: LOW DOSE
  3. NEXIUM [Suspect]
     Indication: GASTROOESOPHAGEAL REFLUX DISEASE
     Dosage: DAILY
     Route: 048
     Dates: start: 20080101
  4. ASCORBIC ACID [Concomitant]
  5. ZOCOR [Concomitant]
  6. FLUID TABLET [Concomitant]

REACTIONS (1)
  - OSTEOPOROSIS [None]
